FAERS Safety Report 13894795 (Version 1)
Quarter: 2017Q3

REPORT INFORMATION
  Report Type: Spontaneous
  Country: US (occurrence: US)
  Receive Date: 20170817
  Receipt Date: 20170817
  Transmission Date: 20171127
  Serious: No
  Sender: FDA-Public Use
  Company Number: None

PATIENT
  Age: 45 Year
  Sex: Female
  Weight: 68.4 kg

DRUGS (1)
  1. BUPROPRION XL [Suspect]
     Active Substance: BUPROPION
     Indication: PERSISTENT DEPRESSIVE DISORDER
     Route: 048

REACTIONS (5)
  - Depressed mood [None]
  - Depression [None]
  - Fatigue [None]
  - Product substitution issue [None]
  - Sedation [None]

NARRATIVE: CASE EVENT DATE: 20170707
